FAERS Safety Report 7267293-7 (Version None)
Quarter: 2011Q1

REPORT INFORMATION
  Report Type: 
  Country: None (occurrence: None)
  Receive Date: 20110201
  Receipt Date: 20110125
  Transmission Date: 20110831
  Serious: Yes (Other)
  Sender: FDA-Public Use
  Company Number: US-SANOFI-AVENTIS-2010SA071305

PATIENT
  Age: 66 Year
  Sex: Male
  Weight: 91.62 kg

DRUGS (10)
  1. MULTI-VITAMINS [Concomitant]
  2. CALCIUM WITH VITAMIN D [Concomitant]
  3. COENZYME Q10 [Concomitant]
  4. CHROMIUM CHLORIDE [Concomitant]
  5. MULTAQ [Suspect]
     Route: 048
     Dates: start: 20101115, end: 20101122
  6. ASPIRIN [Concomitant]
  7. LIPITOR [Concomitant]
     Dates: start: 20101115
  8. ALL OTHER THERAPEUTIC PRODUCTS [Concomitant]
  9. ALL OTHER THERAPEUTIC PRODUCTS [Concomitant]
  10. DABIGATRAN ETEXILATE [Concomitant]
     Indication: ATRIAL FIBRILLATION
     Dates: start: 20101122

REACTIONS (2)
  - ATRIAL FLUTTER [None]
  - ATRIAL FIBRILLATION [None]
